FAERS Safety Report 9476524 (Version 2)
Quarter: 2013Q3

REPORT INFORMATION
  Report Type: Spontaneous
  Country: CH (occurrence: CH)
  Receive Date: 20130826
  Receipt Date: 20130909
  Transmission Date: 20140515
  Serious: Yes (Death)
  Sender: FDA-Public Use
  Company Number: CH-B.I. PHARMACEUTICALS,INC./RIDGEFIELD-2013-BI-25950SI

PATIENT
  Age: 62 Year
  Sex: Male

DRUGS (20)
  1. SIFROL [Suspect]
     Indication: PRODUCT USED FOR UNKNOWN INDICATION
     Route: 048
     Dates: start: 20130620, end: 20130711
  2. ABILIFY [Suspect]
     Route: 048
     Dates: start: 20130706, end: 20130710
  3. ABILIFY [Suspect]
     Route: 048
     Dates: start: 20130707
  4. ABILIFY [Suspect]
     Route: 048
     Dates: start: 20130708
  5. ABILIFY [Suspect]
     Route: 048
     Dates: start: 20130709
  6. ABILIFY [Suspect]
     Route: 048
     Dates: start: 20130710, end: 20130710
  7. REMERON SOLTAB [Suspect]
     Route: 048
     Dates: start: 20130621, end: 20130710
  8. REMERON SOLTAB [Suspect]
     Route: 048
     Dates: start: 20130708, end: 20130710
  9. SERESTA [Suspect]
     Route: 048
     Dates: start: 20130622, end: 20130711
  10. SERESTA [Suspect]
     Route: 048
     Dates: start: 20130623, end: 20130624
  11. SERESTA [Suspect]
     Route: 048
     Dates: start: 20130625, end: 20130630
  12. SERESTA [Suspect]
     Route: 048
     Dates: start: 20130701, end: 20130704
  13. SERESTA [Suspect]
     Route: 048
     Dates: start: 20130705, end: 20130708
  14. SERESTA [Suspect]
     Route: 048
     Dates: start: 20130709, end: 20130711
  15. LITHIOFOR [Suspect]
     Route: 048
     Dates: start: 20130621, end: 20130708
  16. LITHIOFOR [Suspect]
     Route: 048
     Dates: start: 20130709, end: 20130711
  17. DORMICUM [Suspect]
     Route: 048
     Dates: start: 20130620, end: 20130624
  18. CLOPIDOGREL [Concomitant]
     Route: 048
     Dates: start: 20130621, end: 20130711
  19. ASPIRIN CARDIO [Concomitant]
     Route: 048
     Dates: start: 20130621, end: 20130711
  20. NORVASC [Concomitant]
     Route: 048
     Dates: start: 20130621, end: 20130711

REACTIONS (1)
  - Completed suicide [Fatal]
